FAERS Safety Report 4945843-0 (Version None)
Quarter: 2006Q1

REPORT INFORMATION
  Report Type: 
  Country: None (occurrence: None)
  Receive Date: 20060316
  Receipt Date: 20060122
  Transmission Date: 20060701
  Serious: Yes (Death)
  Sender: FDA-Public Use
  Company Number: HR-NOVOPROD-250309

PATIENT
  Age: 2 Month
  Sex: Female
  Weight: 3 kg

DRUGS (1)
  1. NOVOSEVEN [Suspect]
     Indication: PERITONEAL HAEMORRHAGE
     Dosage: .6 MG, (150 UG/KG)
     Route: 042
     Dates: start: 20050903, end: 20050903

REACTIONS (1)
  - DRUG INEFFECTIVE [None]
